FAERS Safety Report 5747529-1 (Version None)
Quarter: 2008Q2

REPORT INFORMATION
  Report Type: 
  Country: None (occurrence: None)
  Receive Date: 20080523
  Receipt Date: 20080520
  Transmission Date: 20081010
  Serious: Yes (Other)
  Sender: FDA-Public Use
  Company Number: CA-ASTRAZENECA-2008UW09702

PATIENT
  Age: 20913 Day
  Sex: Female
  Weight: 85 kg

DRUGS (2)
  1. CRESTOR [Suspect]
     Indication: HYPERCHOLESTEROLAEMIA
     Route: 048
     Dates: start: 20080408
  2. TYLENOL W/ CODEINE NO. 3 [Concomitant]
     Indication: BONE PAIN
     Route: 048
     Dates: start: 20070401

REACTIONS (3)
  - DECREASED APPETITE [None]
  - HYPOAESTHESIA [None]
  - PAIN IN EXTREMITY [None]
